FAERS Safety Report 6560179-2 (Version None)
Quarter: 2010Q1

REPORT INFORMATION
  Report Type: 
  Country: None (occurrence: None)
  Receive Date: 20100129
  Receipt Date: 20050114
  Transmission Date: 20100710
  Serious: No
  Sender: FDA-Public Use
  Company Number: US-ALLERGAN-200500620

PATIENT
  Age: 41 Year
  Sex: Male

DRUGS (2)
  1. BOTOX COSMETIC [Suspect]
     Indication: SKIN WRINKLING
     Dosage: 50UNITS, PRN
     Route: 030
     Dates: start: 20030120, end: 20030120
  2. BOTOX COSMETIC [Suspect]
     Dosage: 50UNITS, PRN
     Route: 030
     Dates: start: 20030505, end: 20030505

REACTIONS (2)
  - DYSPNOEA [None]
  - PULMONARY FIBROSIS [None]
